FAERS Safety Report 7247567-6 (Version None)
Quarter: 2011Q1

REPORT INFORMATION
  Report Type: 
  Country: None (occurrence: None)
  Receive Date: 20110127
  Receipt Date: 20101213
  Transmission Date: 20110831
  Serious: Yes (Hospitalization, Other)
  Sender: FDA-Public Use
  Company Number: AU-ROCHE-754354

PATIENT
  Age: 22 Year
  Sex: Female
  Weight: 85 kg

DRUGS (1)
  1. ISOTRETINOIN [Suspect]
     Indication: ACNE
     Route: 048
     Dates: start: 20090815, end: 20100501

REACTIONS (8)
  - DRY SKIN [None]
  - NAUSEA [None]
  - MOOD ALTERED [None]
  - HEADACHE [None]
  - FATIGUE [None]
  - MYALGIA [None]
  - HALLUCINATION, VISUAL [None]
  - DEPRESSION [None]
